FAERS Safety Report 12285386 (Version 1)
Quarter: 2016Q2

REPORT INFORMATION
  Report Type: Spontaneous
  Country: US (occurrence: None)
  Receive Date: 20160419
  Receipt Date: 20160419
  Transmission Date: 20160815
  Serious: No
  Sender: FDA-Public Use
  Company Number: None

PATIENT
  Age: 55 Year
  Sex: Female
  Weight: 104.78 kg

DRUGS (12)
  1. CALCIUM WITH D-3 [Concomitant]
  2. VITAMIN C [Concomitant]
     Active Substance: ASCORBIC ACID
  3. POTASSIUM [Concomitant]
     Active Substance: POTASSIUM
  4. RANATIDINE [Concomitant]
  5. SIMPONI [Suspect]
     Active Substance: GOLIMUMAB
  6. MAGNESIUM [Concomitant]
     Active Substance: MAGNESIUM
  7. LIALDA [Suspect]
     Active Substance: MESALAMINE
     Indication: COLITIS ULCERATIVE
     Dosage: 4 PILLS WITH FOOD TAKEN BY MOUTH
     Route: 048
     Dates: start: 20151215, end: 20160418
  8. INVOKANA [Concomitant]
     Active Substance: CANAGLIFLOZIN
  9. OMEPRAZOLE. [Concomitant]
     Active Substance: OMEPRAZOLE
  10. VITAMIN B12 [Concomitant]
     Active Substance: CYANOCOBALAMIN
  11. FLONASE [Concomitant]
     Active Substance: FLUTICASONE PROPIONATE
  12. B-6 [Concomitant]

REACTIONS (1)
  - Alopecia [None]

NARRATIVE: CASE EVENT DATE: 20160301
